FAERS Safety Report 25205695 (Version 5)
Quarter: 2025Q3

REPORT INFORMATION
  Report Type: Report from Study
  Country: US (occurrence: US)
  Receive Date: 20250417
  Receipt Date: 20250814
  Transmission Date: 20251021
  Serious: No
  Sender: DECIPHERA PHARMACEUTICALS
  Company Number: US-DECIPHERA PHARMACEUTICALS LLC-2025US000337

PATIENT
  Age: 45 Year
  Sex: Female

DRUGS (5)
  1. ROMVIMZA [Suspect]
     Active Substance: VIMSELTINIB
     Indication: Connective tissue neoplasm
     Dosage: 30 MILLIGRAM, TWICE WEEKLY
     Route: 048
     Dates: start: 20250327, end: 2025
  2. ROMVIMZA [Suspect]
     Active Substance: VIMSELTINIB
     Indication: Soft tissue neoplasm
     Dosage: 20 MILLIGRAM
     Route: 048
     Dates: start: 2025, end: 2025
  3. ROMVIMZA [Suspect]
     Active Substance: VIMSELTINIB
     Indication: Giant cell tumour of tendon sheath
     Dosage: 20 MILLIGRAM
     Route: 048
     Dates: start: 2025, end: 2025
  4. ROMVIMZA [Suspect]
     Active Substance: VIMSELTINIB
     Dosage: 20 MILLIGRAM
     Route: 048
     Dates: start: 2025, end: 2025
  5. FUROSEMIDE [Concomitant]
     Active Substance: FUROSEMIDE
     Indication: Product used for unknown indication
     Dates: start: 2025, end: 202505

REACTIONS (2)
  - Eye disorder [Unknown]
  - Rash [Unknown]

NARRATIVE: CASE EVENT DATE: 20250101
